FAERS Safety Report 18550444 (Version 1)
Quarter: 2020Q4

REPORT INFORMATION
  Report Type: Spontaneous
  Country: GB (occurrence: GB)
  Receive Date: 20201126
  Receipt Date: 20201126
  Transmission Date: 20210114
  Serious: Yes (Congenital Anomaly)
  Sender: FDA-Public Use
  Company Number: GB-009507513-2011GBR011611

PATIENT
  Age: 3 Year
  Sex: Male

DRUGS (1)
  1. PROPECIA [Suspect]
     Active Substance: FINASTERIDE
     Dosage: 1 MILLIGRAM, FREQUENCY UNKNOWN
     Route: 064

REACTIONS (3)
  - Scrotal disorder [Unknown]
  - Foetal exposure during pregnancy [Recovered/Resolved]
  - Exposure via father [Recovered/Resolved]
